FAERS Safety Report 5434289-7 (Version None)
Quarter: 2007Q3

REPORT INFORMATION
  Report Type: 
  Country: None (occurrence: None)
  Receive Date: 20070831
  Receipt Date: 20070823
  Transmission Date: 20080115
  Serious: Yes (Death, Hospitalization)
  Sender: FDA-Public Use
  Company Number: JP-BRISTOL-MYERS SQUIBB COMPANY-13877766

PATIENT
  Age: 54 Year
  Sex: Male
  Weight: 57 kg

DRUGS (9)
  1. CISPLATIN [Suspect]
     Indication: PLEURAL MESOTHELIOMA MALIGNANT
     Route: 042
     Dates: start: 20070528, end: 20070528
  2. ALIMTA [Suspect]
     Indication: PLEURAL MESOTHELIOMA MALIGNANT
     Route: 042
     Dates: start: 20070528, end: 20070528
  3. PANVITAN [Concomitant]
     Dates: start: 20070521, end: 20070713
  4. METHYCOBAL [Concomitant]
     Dates: start: 20070521, end: 20070521
  5. DECADRON [Concomitant]
     Dates: start: 20070528, end: 20070601
  6. KYTRIL [Concomitant]
     Dates: start: 20070528, end: 20070601
  7. ADONA [Concomitant]
     Dates: start: 20070528, end: 20070604
  8. TRANSAMIN [Concomitant]
     Dates: start: 20070528, end: 20070604
  9. PRIMPERAN INJ [Concomitant]
     Dates: start: 20070530, end: 20070606

REACTIONS (3)
  - DEATH [None]
  - PNEUMONIA [None]
  - PULMONARY NECROSIS [None]
